FAERS Safety Report 17446257 (Version 4)
Quarter: 2023Q4

REPORT INFORMATION
  Report Type: Spontaneous
  Country: US (occurrence: US)
  Receive Date: 20200221
  Receipt Date: 20231025
  Transmission Date: 20240110
  Serious: No
  Sender: FDA-Public Use
  Company Number: US-VERTEX PHARMACEUTICALS-2020-003153

PATIENT
  Age: 43 Year
  Sex: Female
  Weight: 62 kg

DRUGS (5)
  1. TRIKAFTA [Suspect]
     Active Substance: ELEXACAFTOR\IVACAFTOR\TEZACAFTOR
     Indication: Cystic fibrosis
     Dosage: 2 TABLETS OF 100MG ELEXACAFTOR/ 50 MG TEZACAFTOR/ 75 MG IVACAFTOR AM; 1 TABLET 150 MG IVACAFTOR PM
     Route: 048
     Dates: start: 20200121
  2. PULMOZYME [Concomitant]
     Active Substance: DORNASE ALFA
     Dosage: 2.5 MG, BID
  3. AZITHROMYCIN [Concomitant]
     Active Substance: AZITHROMYCIN
     Dosage: UNK
  4. ALLEGRA [Concomitant]
     Active Substance: FEXOFENADINE HYDROCHLORIDE
     Dosage: D-12-HOUR
  5. VITAMIN D [Concomitant]
     Active Substance: VITAMIN D NOS
     Dosage: 400 UNIT

REACTIONS (8)
  - Fatigue [Not Recovered/Not Resolved]
  - Abdominal distension [Unknown]
  - Flatulence [Not Recovered/Not Resolved]
  - Rhinorrhoea [Unknown]
  - Headache [Recovered/Resolved]
  - Middle insomnia [Unknown]
  - Insomnia [Not Recovered/Not Resolved]
  - Arthropod bite [Unknown]

NARRATIVE: CASE EVENT DATE: 20200101
